FAERS Safety Report 9469779 (Version 3)
Quarter: 2013Q4

REPORT INFORMATION
  Report Type: Report from Study
  Country: AU (occurrence: AU)
  Receive Date: 20130822
  Receipt Date: 20131002
  Transmission Date: 20140711
  Serious: Yes (Death, Life-Threatening)
  Sender: FDA-Public Use
  Company Number: PHHY2013AU090863

PATIENT
  Age: 65 Year
  Sex: Male
  Weight: 114 kg

DRUGS (7)
  1. CLOZARIL [Suspect]
     Indication: SCHIZOPHRENIA
     Dosage: 500 MG, DAILY
     Route: 048
     Dates: start: 20040319, end: 20130821
  2. PERINDOPRIL [Concomitant]
     Dosage: 5 MG, MANE
     Route: 048
     Dates: start: 20130718
  3. SODIUM VALPROATE [Concomitant]
     Dosage: 2500 MG, DAILY (1000 MG MANE, 1500 MG NOCTE)
     Route: 048
     Dates: start: 20130718
  4. LASIX [Concomitant]
     Dosage: 40 MG, MANE
     Route: 048
     Dates: start: 20130718
  5. SOMAC [Concomitant]
     Dosage: 40 MG, MANE
     Route: 048
     Dates: start: 20130718
  6. ASTRIX [Concomitant]
     Dosage: 100 MG, MANE
     Route: 048
     Dates: start: 20130718
  7. GLICLAZIDE [Concomitant]
     Dosage: 60 MG, MANE
     Route: 048
     Dates: start: 20130718

REACTIONS (2)
  - Pneumonia aspiration [Fatal]
  - Haematemesis [Not Recovered/Not Resolved]
